FAERS Safety Report 10754777 (Version 1)
Quarter: 2015Q1

REPORT INFORMATION
  Report Type: Spontaneous
  Country: US (occurrence: None)
  Receive Date: 20150130
  Receipt Date: 20150130
  Transmission Date: 20150721
  Serious: Yes (Other)
  Sender: FDA-Public Use
  Company Number: None

PATIENT
  Age: 61 Year
  Sex: Female

DRUGS (7)
  1. AFINITOR [Suspect]
     Active Substance: EVEROLIMUS
     Indication: RENAL CELL CARCINOMA
     Dosage: ONE TABLET, QD, ORAL
     Route: 048
     Dates: start: 20141203, end: 20150129
  2. ATENOLOL. [Concomitant]
     Active Substance: ATENOLOL
  3. CYMBALTA [Concomitant]
     Active Substance: DULOXETINE HYDROCHLORIDE
  4. DIAZEPAM. [Concomitant]
     Active Substance: DIAZEPAM
  5. TRAMADOL [Concomitant]
     Active Substance: TRAMADOL
  6. LISINOPRIL. [Concomitant]
     Active Substance: LISINOPRIL
  7. LEVOTHROID [Concomitant]
     Active Substance: LEVOTHYROXINE SODIUM

REACTIONS (2)
  - Malignant neoplasm progression [None]
  - Neoplasm malignant [None]

NARRATIVE: CASE EVENT DATE: 20150129
